FAERS Safety Report 9209429 (Version 1)
Quarter: 2013Q2

REPORT INFORMATION
  Report Type: Spontaneous
  Country: BR (occurrence: BR)
  Receive Date: 20130404
  Receipt Date: 20130404
  Transmission Date: 20140414
  Serious: Yes (Other)
  Sender: FDA-Public Use
  Company Number: BR-SANOFI-AVENTIS-2013SA032781

PATIENT
  Sex: Male

DRUGS (10)
  1. LANTUS [Suspect]
     Dosage: STARTED 3-4 YEARS AGO
     Route: 058
  2. AUTOPEN 24 [Suspect]
     Indication: DEVICE THERAPY
  3. HERBAL PREPARATION [Concomitant]
     Indication: HORMONE REPLACEMENT THERAPY
     Route: 048
     Dates: start: 2010
  4. VITAMIN C [Concomitant]
     Indication: IMMUNISATION
     Route: 048
  5. GINKGO BILOBA [Concomitant]
     Indication: OXYGEN SUPPLEMENTATION
     Route: 048
  6. EVIT [Concomitant]
     Indication: PROMOTION OF PERIPHERAL CIRCULATION
     Route: 048
     Dates: start: 2012
  7. EVIT [Concomitant]
     Indication: BLOOD PRESSURE INCREASED
     Route: 048
     Dates: start: 2012
  8. VASTAREL [Concomitant]
     Indication: CARDIOVASCULAR DISORDER
     Route: 048
     Dates: start: 2012
  9. VASCASE [Concomitant]
     Indication: PERIPHERAL VASCULAR DISORDER
     Route: 048
     Dates: start: 2012
  10. VASCASE [Concomitant]
     Indication: BLOOD PRESSURE
     Route: 048
     Dates: start: 2012

REACTIONS (13)
  - Blindness [Not Recovered/Not Resolved]
  - Blindness [Not Recovered/Not Resolved]
  - Diabetic retinopathy [Not Recovered/Not Resolved]
  - Hypertension [Not Recovered/Not Resolved]
  - Renal disorder [Not Recovered/Not Resolved]
  - Visual acuity reduced [Not Recovered/Not Resolved]
  - Hypoglycaemia [Not Recovered/Not Resolved]
  - Tremor [Not Recovered/Not Resolved]
  - Cold sweat [Not Recovered/Not Resolved]
  - Somnolence [Not Recovered/Not Resolved]
  - Hyperglycaemia [Not Recovered/Not Resolved]
  - Polyuria [Not Recovered/Not Resolved]
  - Sluggishness [Not Recovered/Not Resolved]
